FAERS Safety Report 9416138 (Version 1)
Quarter: 2013Q3

REPORT INFORMATION
  Report Type: Spontaneous
  Country: US (occurrence: US)
  Receive Date: 20130724
  Receipt Date: 20130724
  Transmission Date: 20140515
  Serious: Yes (Hospitalization)
  Sender: FDA-Public Use
  Company Number: US-ASTRAZENECA-2013SE53120

PATIENT
  Age: 71 Year
  Sex: Female
  Weight: 90.7 kg

DRUGS (7)
  1. NEXIUM [Suspect]
     Indication: GASTROOESOPHAGEAL REFLUX DISEASE
     Route: 048
     Dates: start: 2003
  2. HYDROCHORITHIAZIDE [Concomitant]
     Indication: FLUID IMBALANCE
     Route: 048
  3. KLOR CON [Concomitant]
     Indication: HYPOKALAEMIA
     Route: 048
  4. APRAZALAM [Concomitant]
     Indication: ANXIETY
     Dosage: 1/2 MG PRN
     Route: 048
  5. ASPIRIN [Concomitant]
     Indication: CARDIAC DISORDER
     Route: 048
  6. GLIPIZIDE [Concomitant]
     Indication: DIABETES MELLITUS
     Route: 048
  7. DIOVAN [Concomitant]
     Indication: HYPERTENSION
     Route: 048

REACTIONS (13)
  - Pain [Not Recovered/Not Resolved]
  - Throat irritation [Not Recovered/Not Resolved]
  - Choking [Not Recovered/Not Resolved]
  - Ulcer haemorrhage [Not Recovered/Not Resolved]
  - Oesophageal polyp [Not Recovered/Not Resolved]
  - Gastric polyps [Not Recovered/Not Resolved]
  - Haemorrhage [Not Recovered/Not Resolved]
  - Dyspnoea [Not Recovered/Not Resolved]
  - Dehydration [Not Recovered/Not Resolved]
  - Abdominal discomfort [Not Recovered/Not Resolved]
  - Vomiting [Not Recovered/Not Resolved]
  - Blood count abnormal [None]
  - Gait disturbance [Not Recovered/Not Resolved]
